FAERS Safety Report 9157308 (Version 1)
Quarter: 2013Q1

REPORT INFORMATION
  Report Type: Spontaneous
  Country: US (occurrence: None)
  Receive Date: 20130211
  Receipt Date: 20130211
  Transmission Date: 20140127
  Serious: Yes (Hospitalization)
  Sender: FDA-Public Use
  Company Number: 2013S1000339

PATIENT
  Age: 43 Year
  Sex: Female
  Weight: 92 kg

DRUGS (12)
  1. LIVALO [Suspect]
     Indication: BLOOD CHOLESTEROL INCREASED
     Dosage: 2 MG; 1X; PO
     Route: 048
     Dates: start: 2011, end: 20130110
  2. PREDNISONE [Concomitant]
  3. SYMBICORT [Concomitant]
  4. PRILOSEC [Concomitant]
  5. METFORMIN [Concomitant]
  6. XANAX [Concomitant]
  7. EFFEXOR [Concomitant]
  8. ALBUTEROL [Concomitant]
  9. BABY ASPIRIN [Concomitant]
  10. NYSTATIN ACIS [Concomitant]
  11. SINGULAIR [Concomitant]
  12. CLARITIN [Concomitant]

REACTIONS (4)
  - Candida infection [None]
  - Dysgeusia [None]
  - Asthma [None]
  - Bronchitis [None]
